FAERS Safety Report 21136076 (Version 5)
Quarter: 2023Q2

REPORT INFORMATION
  Report Type: Spontaneous
  Country: JP (occurrence: JP)
  Receive Date: 20220727
  Receipt Date: 20230612
  Transmission Date: 20230722
  Serious: Yes (Hospitalization, Other)
  Sender: FDA-Public Use
  Company Number: JP-UCBJ-CD202207018UCBPHAPROD

PATIENT
  Age: 28 Year
  Sex: Female
  Weight: 64.5 kg

DRUGS (8)
  1. CIMZIA [Suspect]
     Active Substance: CERTOLIZUMAB PEGOL
     Indication: Rheumatoid arthritis
     Dosage: 200 MILLIGRAM, EV 2 WEEKS(QOW)
     Route: 058
     Dates: start: 20220513, end: 20220527
  2. METHOTREXATE [Concomitant]
     Active Substance: METHOTREXATE
     Indication: Product used for unknown indication
     Dosage: 8 MILLIGRAM, WEEKLY (QW)
     Route: 048
     Dates: start: 20211112, end: 20211209
  3. METHOTREXATE [Concomitant]
     Active Substance: METHOTREXATE
     Dosage: 10 MILLIGRAM, WEEKLY (QW)
     Route: 048
     Dates: start: 20211210, end: 20211226
  4. METHOTREXATE [Concomitant]
     Active Substance: METHOTREXATE
     Dosage: 12 MILLIGRAM, WEEKLY (QW)
     Route: 048
     Dates: start: 20211227, end: 20220110
  5. METHOTREXATE [Concomitant]
     Active Substance: METHOTREXATE
     Dosage: 14 MILLIGRAM, WEEKLY (QW)
     Route: 048
     Dates: start: 20220111, end: 20220324
  6. METHOTREXATE [Concomitant]
     Active Substance: METHOTREXATE
     Dosage: 16 MILLIGRAM, WEEKLY (QW)
     Route: 048
     Dates: start: 20220325, end: 20220527
  7. IGURATIMOD [Concomitant]
     Active Substance: IGURATIMOD
     Indication: Product used for unknown indication
     Dosage: 25 MILLIGRAM, 2X/DAY (BID)
     Route: 048
     Dates: start: 20220218, end: 20220527
  8. IGURATIMOD [Concomitant]
     Active Substance: IGURATIMOD
     Dosage: 25 MILLIGRAM, ONCE DAILY (QD)
     Route: 048
     Dates: start: 20220111, end: 20220217

REACTIONS (1)
  - Systemic lupus erythematosus [Not Recovered/Not Resolved]

NARRATIVE: CASE EVENT DATE: 20220527
